FAERS Safety Report 25079755 (Version 2)
Quarter: 2025Q1

REPORT INFORMATION
  Report Type: Spontaneous
  Country: FR (occurrence: FR)
  Receive Date: 20250314
  Receipt Date: 20250331
  Transmission Date: 20250409
  Serious: Yes (Hospitalization, Other)
  Sender: ALEXION PHARMACEUTICALS
  Company Number: FR-AstraZeneca-CH-00811825A

PATIENT
  Age: 52 Year

DRUGS (4)
  1. SOLIRIS [Suspect]
     Active Substance: ECULIZUMAB
     Route: 065
  2. SOLIRIS [Suspect]
     Active Substance: ECULIZUMAB
     Dosage: 1200 MILLIGRAM, QW
     Route: 065
  3. CYCLOPHOSPHAMIDE [Concomitant]
     Active Substance: CYCLOPHOSPHAMIDE
     Route: 065
  4. FUROSEMIDE [Concomitant]
     Active Substance: FUROSEMIDE
     Indication: Oedema peripheral
     Route: 065

REACTIONS (8)
  - Renal failure [Unknown]
  - Nephrotic syndrome [Unknown]
  - Cardiac failure [Unknown]
  - Renal tubular necrosis [Unknown]
  - Haptoglobin decreased [Unknown]
  - Malignant hypertension [Unknown]
  - Off label use [Unknown]
  - Haemoglobin decreased [Unknown]
